FAERS Safety Report 24244475 (Version 1)
Quarter: 2024Q3

REPORT INFORMATION
  Report Type: Spontaneous
  Country: CN (occurrence: CN)
  Receive Date: 20240823
  Receipt Date: 20240823
  Transmission Date: 20241017
  Serious: Yes (Other)
  Sender: NOVARTIS
  Company Number: CN-002147023-NVSC2024CN171146

PATIENT

DRUGS (1)
  1. EVEROLIMUS [Suspect]
     Active Substance: EVEROLIMUS
     Indication: Solid pseudopapillary tumour of the pancreas
     Dosage: 10 MG, QD
     Route: 065

REACTIONS (2)
  - Solid pseudopapillary tumour of the pancreas [Unknown]
  - Malignant neoplasm progression [Unknown]
